FAERS Safety Report 7057519-7 (Version None)
Quarter: 2010Q4

REPORT INFORMATION
  Report Type: 
  Country: None (occurrence: None)
  Receive Date: 20101022
  Receipt Date: 20101013
  Transmission Date: 20110411
  Serious: Yes (Hospitalization)
  Sender: FDA-Public Use
  Company Number: FR-ASTRAZENECA-2010SE48953

PATIENT
  Age: 24642 Day
  Sex: Female
  Weight: 71 kg

DRUGS (8)
  1. NEXIUM [Suspect]
     Indication: COLONOSCOPY
     Route: 048
     Dates: start: 20100825, end: 20100901
  2. AUGMENTIN '125' [Suspect]
     Route: 048
     Dates: start: 20100901, end: 20100904
  3. ARIMIDEX [Concomitant]
     Indication: BREAST CANCER
     Route: 048
  4. HYPNOVEL [Concomitant]
     Indication: GENERAL ANAESTHESIA
     Dates: start: 20100901, end: 20100901
  5. SUFENTA PRESERVATIVE FREE [Concomitant]
     Indication: GENERAL ANAESTHESIA
     Dates: start: 20100901, end: 20100901
  6. PROPOFOL [Concomitant]
     Indication: GENERAL ANAESTHESIA
     Dates: start: 20100901, end: 20100901
  7. CORTANCYL [Concomitant]
     Dates: start: 20100824, end: 20100903
  8. CORTANCYL [Concomitant]
     Dates: start: 20100904

REACTIONS (5)
  - AGRANULOCYTOSIS [None]
  - ATRIAL FIBRILLATION [None]
  - FEBRILE BONE MARROW APLASIA [None]
  - PSEUDOMONAS INFECTION [None]
  - THROMBOCYTOPENIA [None]
